FAERS Safety Report 21634209 (Version 2)
Quarter: 2023Q4

REPORT INFORMATION
  Report Type: Spontaneous
  Country: US (occurrence: US)
  Receive Date: 20221123
  Receipt Date: 20231109
  Transmission Date: 20240109
  Serious: No
  Sender: FDA-Public Use
  Company Number: US-INSMED, INC.-2022-01618-US

PATIENT
  Sex: Female

DRUGS (5)
  1. ARIKAYCE [Suspect]
     Active Substance: AMIKACIN
     Indication: Product used for unknown indication
     Dosage: 590 MILLIGRAM, QD
     Route: 055
     Dates: start: 20220603, end: 202206
  2. ARIKAYCE [Suspect]
     Active Substance: AMIKACIN
     Dosage: UNK
     Route: 055
     Dates: start: 202206, end: 2022
  3. ARIKAYCE [Suspect]
     Active Substance: AMIKACIN
     Dosage: 590 MILLIGRAM, 5 DAYS A WEEK
     Route: 055
     Dates: start: 2022
  4. ARIKAYCE [Suspect]
     Active Substance: AMIKACIN
     Dosage: 590 MILLIGRAM, FOUR TIMES A WEEK
     Route: 055
     Dates: start: 2022, end: 2022
  5. ARIKAYCE [Suspect]
     Active Substance: AMIKACIN
     Dosage: 590 MILLIGRAM, FIVE DAYS A WEEK
     Route: 055
     Dates: start: 2022, end: 20221114

REACTIONS (2)
  - Aphonia [Unknown]
  - Cough [Unknown]

NARRATIVE: CASE EVENT DATE: 20220101
